FAERS Safety Report 23696918 (Version 1)
Quarter: 2024Q2

REPORT INFORMATION
  Report Type: Spontaneous
  Country: CN (occurrence: CN)
  Receive Date: 20240402
  Receipt Date: 20240402
  Transmission Date: 20240716
  Serious: Yes (Hospitalization, Other)
  Sender: FDA-Public Use
  Company Number: CN-GTI-000213

PATIENT
  Age: 30 Year
  Sex: Female

DRUGS (3)
  1. PREDNISONE [Suspect]
     Active Substance: PREDNISONE
     Indication: Systemic lupus erythematosus
     Route: 065
  2. CEFTAZIDIME [Suspect]
     Active Substance: CEFTAZIDIME
     Indication: Antibiotic prophylaxis
     Route: 042
  3. LEVOFLOXACIN [Suspect]
     Active Substance: LEVOFLOXACIN
     Indication: Antibiotic prophylaxis
     Route: 047

REACTIONS (5)
  - Endophthalmitis [Recovered/Resolved]
  - Aeromonas infection [Recovered/Resolved]
  - Ulcerative keratitis [Recovered/Resolved]
  - Corneal perforation [Recovered/Resolved]
  - Disease progression [Recovered/Resolved]
